FAERS Safety Report 25170225 (Version 1)
Quarter: 2025Q2

REPORT INFORMATION
  Report Type: Report from Study
  Country: US (occurrence: US)
  Receive Date: 20250407
  Receipt Date: 20250407
  Transmission Date: 20250716
  Serious: Yes (Hospitalization, Other)
  Sender: ABBVIE
  Company Number: US-ABBVIE-6141902

PATIENT
  Age: 71 Year
  Sex: Male

DRUGS (2)
  1. HUMIRA [Suspect]
     Active Substance: ADALIMUMAB
     Indication: Product used for unknown indication
     Route: 058
     Dates: start: 20200723
  2. HUMIRA [Suspect]
     Active Substance: ADALIMUMAB
     Route: 058
     Dates: start: 20190424

REACTIONS (5)
  - Arthropathy [Unknown]
  - Thrombosis [Unknown]
  - Arterial bypass operation [Unknown]
  - Pneumothorax [Unknown]
  - Venous stenosis [Unknown]

NARRATIVE: CASE EVENT DATE: 20250101
